FAERS Safety Report 12729043 (Version 9)
Quarter: 2017Q3

REPORT INFORMATION
  Report Type: Report from Study
  Country: CA (occurrence: CA)
  Receive Date: 20160909
  Receipt Date: 20170912
  Transmission Date: 20171127
  Serious: Yes (Other)
  Sender: FDA-Public Use
  Company Number: CA-SA-2015SA196481

PATIENT
  Age: 43 Year
  Sex: Female
  Weight: 53.97 kg

DRUGS (8)
  1. LEMTRADA [Suspect]
     Active Substance: ALEMTUZUMAB
     Indication: RELAPSING-REMITTING MULTIPLE SCLEROSIS
     Route: 041
     Dates: start: 20151124, end: 20151126
  2. ACYCLOVIR. [Concomitant]
     Active Substance: ACYCLOVIR
     Indication: PREMEDICATION
     Route: 048
     Dates: start: 20151124
  3. TYLENOL [Concomitant]
     Active Substance: ACETAMINOPHEN
     Dosage: 500-1000MG
     Route: 048
     Dates: start: 20151123
  4. RANITIDINE. [Concomitant]
     Active Substance: RANITIDINE
     Indication: PREMEDICATION
     Route: 048
     Dates: start: 20151123
  5. BENADRYL [Concomitant]
     Active Substance: DIPHENHYDRAMINE HYDROCHLORIDE
     Dosage: 25-50 MG
     Route: 048
     Dates: start: 20151124
  6. METHYLPREDNISOLONE. [Concomitant]
     Active Substance: METHYLPREDNISOLONE
     Indication: PREMEDICATION
     Route: 042
     Dates: start: 20151124
  7. REACTINE [Concomitant]
     Active Substance: CETIRIZINE HYDROCHLORIDE
     Indication: PREMEDICATION
     Route: 048
     Dates: start: 20151123
  8. GRAVOL [Concomitant]
     Active Substance: DIMENHYDRINATE
     Dosage: 25-50 MG
     Route: 048
     Dates: start: 20151124

REACTIONS (29)
  - Hypochromasia [Not Recovered/Not Resolved]
  - Urine abnormality [Not Recovered/Not Resolved]
  - Mean cell haemoglobin concentration decreased [Recovered/Resolved]
  - Haemoglobin decreased [Not Recovered/Not Resolved]
  - Protein urine present [Not Recovered/Not Resolved]
  - Nitrite urine present [Recovered/Resolved]
  - Atypical pneumonia [Not Recovered/Not Resolved]
  - Red blood cells urine [Recovered/Resolved]
  - Platelet count increased [Recovered/Resolved]
  - Mean cell haemoglobin decreased [Not Recovered/Not Resolved]
  - White blood cell count increased [Recovered/Resolved]
  - Crystal urine present [Not Recovered/Not Resolved]
  - Red cell distribution width increased [Not Recovered/Not Resolved]
  - Microcytosis [Not Recovered/Not Resolved]
  - Haematocrit decreased [Not Recovered/Not Resolved]
  - Leukocyturia [Recovered/Resolved]
  - Blood test abnormal [Not Recovered/Not Resolved]
  - Neutrophil count increased [Recovered/Resolved]
  - Monocyte count increased [Recovered/Resolved]
  - Fatigue [Recovered/Resolved]
  - Cough [Not Recovered/Not Resolved]
  - Mean cell volume [Not Recovered/Not Resolved]
  - Nausea [Recovered/Resolved]
  - Lymphocyte count decreased [Recovered/Resolved]
  - Headache [Recovered/Resolved]
  - Body temperature increased [Unknown]
  - Blood urine present [Not Recovered/Not Resolved]
  - Poikilocytosis [Unknown]
  - Haemoglobin urine present [Recovered/Resolved]

NARRATIVE: CASE EVENT DATE: 20151124
